FAERS Safety Report 10245361 (Version 1)
Quarter: 2014Q2

REPORT INFORMATION
  Report Type: Spontaneous
  Country: US (occurrence: US)
  Receive Date: 20140618
  Receipt Date: 20140618
  Transmission Date: 20141212
  Serious: Yes (Other)
  Sender: FDA-Public Use
  Company Number: US-BAXTER-2014BAX030341

PATIENT
  Age: 68 Year
  Sex: Male

DRUGS (2)
  1. VANCOMYCIN INJECTION, USP [Suspect]
     Indication: STAPHYLOCOCCAL BACTERAEMIA
     Route: 065
  2. CIPROFLOXACIN [Concomitant]
     Indication: INFECTION
     Route: 065

REACTIONS (2)
  - Staphylococcal bacteraemia [Unknown]
  - Heart valve incompetence [Unknown]
